FAERS Safety Report 5704545-3 (Version None)
Quarter: 2008Q2

REPORT INFORMATION
  Report Type: 
  Country: None (occurrence: None)
  Receive Date: 20080411
  Receipt Date: 20080411
  Transmission Date: 20081010
  Serious: Yes (Other)
  Sender: FDA-Public Use
  Company Number: None

PATIENT
  Sex: Female
  Weight: 84.369 kg

DRUGS (2)
  1. SINGULAIR [Suspect]
     Indication: ASTHMA
     Dosage: 10MG ONCE DAILY PO
     Route: 048
     Dates: start: 20070920, end: 20080408
  2. SINGULAIR [Suspect]
     Indication: HYPERSENSITIVITY
     Dosage: 10MG ONCE DAILY PO
     Route: 048
     Dates: start: 20070920, end: 20080408

REACTIONS (5)
  - DEPRESSION [None]
  - FATIGUE [None]
  - HEADACHE [None]
  - LETHARGY [None]
  - TREMOR [None]
